FAERS Safety Report 19520076 (Version 2)
Quarter: 2024Q1

REPORT INFORMATION
  Report Type: Spontaneous
  Country: US (occurrence: US)
  Receive Date: 20210712
  Receipt Date: 20240321
  Transmission Date: 20240410
  Serious: No
  Sender: FDA-Public Use
  Company Number: US-SECURA BIO, INC.-2021US000916

PATIENT

DRUGS (1)
  1. COPIKTRA [Suspect]
     Active Substance: DUVELISIB
     Indication: Angioimmunoblastic T-cell lymphoma
     Dosage: 25 MG, BID
     Route: 048
     Dates: start: 20210119

REACTIONS (3)
  - Red cell distribution width increased [Unknown]
  - Blood cholesterol [Unknown]
  - Pain [Unknown]
